FAERS Safety Report 25242437 (Version 1)
Quarter: 2025Q2

REPORT INFORMATION
  Report Type: Spontaneous
  Country: US (occurrence: US)
  Receive Date: 20250427
  Receipt Date: 20250427
  Transmission Date: 20250716
  Serious: Yes (Hospitalization, Other)
  Sender: AUROBINDO
  Company Number: US-APOTEX-2011AP001533

PATIENT
  Age: 50 Year
  Sex: Male

DRUGS (1)
  1. KETOCONAZOLE [Suspect]
     Active Substance: KETOCONAZOLE
     Indication: Hyperadrenocorticism
     Route: 065

REACTIONS (2)
  - Adrenocortical insufficiency acute [Recovering/Resolving]
  - Off label use [Recovering/Resolving]
